FAERS Safety Report 24994452 (Version 1)
Quarter: 2025Q1

REPORT INFORMATION
  Report Type: Spontaneous
  Country: FR (occurrence: FR)
  Receive Date: 20250221
  Receipt Date: 20250221
  Transmission Date: 20250409
  Serious: Yes (Death, Other)
  Sender: AUROBINDO
  Company Number: FR-AFSSAPS-CN2025000086

PATIENT
  Age: 89 Year
  Sex: Male
  Weight: 75 kg

DRUGS (18)
  1. FUROSEMIDE [Suspect]
     Active Substance: FUROSEMIDE
     Indication: Cardiac failure
     Dosage: 40 MILLIGRAM, ONCE A DAY
     Route: 048
     Dates: start: 20241106, end: 20241128
  2. LERCANIDIPINE [Suspect]
     Active Substance: LERCANIDIPINE
     Indication: Hypertension
     Dosage: 600 MILLIGRAM, ONCE A DAY
     Route: 048
     Dates: start: 20240514, end: 20241128
  3. MORPHINE SULFATE [Suspect]
     Active Substance: MORPHINE SULFATE
     Indication: Pain
     Dosage: 5 MILLIGRAM, ONCE A DAY [+ 1 SI BESOIN, MAX 6/JOUR]
     Route: 048
     Dates: start: 20241021, end: 20241128
  4. FENTANYL [Suspect]
     Active Substance: FENTANYL
     Indication: Pain
     Dosage: 1 DOSAGE FORM, 3 TIMES A DAY [12 ?G/H]
     Route: 062
     Dates: start: 20241021, end: 20241128
  5. OXAZEPAM [Suspect]
     Active Substance: OXAZEPAM
     Indication: Anxiety
     Dosage: 5 MILLIGRAM, ONCE A DAY [1/2 CPR LES MATINS]
     Route: 048
     Dates: start: 20241030, end: 20241108
  6. OXAZEPAM [Suspect]
     Active Substance: OXAZEPAM
     Dosage: 15 MILLIGRAM, ONCE A DAY [1/2-0-1 CPR]
     Route: 048
     Dates: start: 20241108, end: 20241128
  7. POTASSIUM CHLORIDE [Suspect]
     Active Substance: POTASSIUM CHLORIDE
     Indication: Hypokalaemia
     Dosage: 600 MILLIGRAM, ONCE A DAY
     Route: 048
     Dates: start: 20241106, end: 20241128
  8. AMOXICILLIN\CLAVULANIC ACID [Concomitant]
     Active Substance: AMOXICILLIN\CLAVULANIC ACID
     Indication: Pneumonia aspiration
     Dosage: 1 DOSAGE FORM, 3 TIMES A DAY
     Route: 048
     Dates: start: 20241122, end: 20241128
  9. ELIQUIS [Concomitant]
     Active Substance: APIXABAN
     Indication: Atrial fibrillation
     Dosage: 2.5 MILLIGRAM, TWO TIMES A DAY
     Route: 048
     Dates: start: 20240514, end: 20241005
  10. ELIQUIS [Concomitant]
     Active Substance: APIXABAN
     Dosage: 2.5 MILLIGRAM, TWO TIMES A DAY
     Route: 048
     Dates: start: 20241108, end: 20241128
  11. FINASTERIDE [Concomitant]
     Active Substance: FINASTERIDE
     Indication: Product used for unknown indication
     Dosage: 5 MILLIGRAM, ONCE A DAY [0-0-1]
     Route: 048
     Dates: start: 20240514, end: 20241128
  12. SILODOSIN [Concomitant]
     Active Substance: SILODOSIN
     Indication: Product used for unknown indication
     Dosage: 8 MILLIGRAM, ONCE A DAY [0-0-1]
     Route: 048
     Dates: start: 20240514, end: 20241128
  13. PANTOPRAZOLE SODIUM [Concomitant]
     Active Substance: PANTOPRAZOLE SODIUM
     Indication: Product used for unknown indication
     Dosage: 20 MILLIGRAM, ONCE A DAY [1-0-0]
     Route: 048
     Dates: start: 20240514, end: 20241128
  14. POLYETHYLENE GLYCOL 4000 [Concomitant]
     Active Substance: POLYETHYLENE GLYCOL 4000
     Indication: Constipation
     Dosage: 10 GRAM, EVERY OTHER DAY
     Route: 048
     Dates: start: 20240816, end: 20241128
  15. MIANSERIN HYDROCHLORIDE [Concomitant]
     Active Substance: MIANSERIN HYDROCHLORIDE
     Indication: Constipation
     Dosage: 30 MILLIGRAM, ONCE A DAY [0-0-1]
     Route: 048
     Dates: start: 20240514, end: 20241128
  16. DOLIPRANE [Concomitant]
     Active Substance: ACETAMINOPHEN
     Indication: Pain
     Dosage: 1 GRAM, 3 TIMES A DAY [2-2-2]
     Route: 048
     Dates: start: 20241112, end: 20241128
  17. PHLOROGLUCINOL [Concomitant]
     Active Substance: PHLOROGLUCINOL
     Indication: Product used for unknown indication
     Route: 048
     Dates: start: 20240514, end: 20241128
  18. CHOLECALCIFEROL [Concomitant]
     Active Substance: CHOLECALCIFEROL
     Indication: Vitamin supplementation
     Route: 048
     Dates: start: 20240803, end: 20241128

REACTIONS (1)
  - Choking [Fatal]

NARRATIVE: CASE EVENT DATE: 20241128
